FAERS Safety Report 4347761-8 (Version None)
Quarter: 2004Q2

REPORT INFORMATION
  Report Type: 
  Country: None (occurrence: None)
  Receive Date: 20040427
  Receipt Date: 20040420
  Transmission Date: 20050107
  Serious: Yes (Hospitalization)
  Sender: FDA-Public Use
  Company Number: 200410851DE

PATIENT
  Age: 55 Year
  Sex: Female

DRUGS (6)
  1. DELIX [Suspect]
     Route: 048
     Dates: start: 20000623, end: 20000626
  2. LASIX [Suspect]
     Dates: end: 20000627
  3. LEPONEX [Suspect]
     Dosage: DOSE: UP TO 225MG
     Route: 048
     Dates: start: 19971201, end: 20000616
  4. TRUXAL [Suspect]
     Dates: start: 20000615, end: 20000626
  5. HALDOL [Suspect]
     Dates: start: 20000424
  6. DYTIDE H [Suspect]
     Dates: end: 20000627

REACTIONS (5)
  - CIRCULATORY COLLAPSE [None]
  - CONTUSION [None]
  - DIZZINESS [None]
  - DRUG INTERACTION [None]
  - VENTRICULAR HYPERTROPHY [None]
